FAERS Safety Report 13518877 (Version 3)
Quarter: 2017Q3

REPORT INFORMATION
  Report Type: Spontaneous
  Country: US (occurrence: US)
  Receive Date: 20170505
  Receipt Date: 20170703
  Transmission Date: 20171127
  Serious: Yes (Other)
  Sender: FDA-Public Use
  Company Number: US-AMGEN-USASP2017066592

PATIENT
  Age: 57 Year
  Sex: Female

DRUGS (2)
  1. ENBREL [Suspect]
     Active Substance: ETANERCEPT
     Indication: RHEUMATOID ARTHRITIS
     Dosage: UNK UNK, QWK
     Route: 058
     Dates: start: 20160414, end: 20170410
  2. VITAMIN B12 [Concomitant]
     Active Substance: CYANOCOBALAMIN
     Dosage: UNK

REACTIONS (14)
  - Pulse abnormal [Unknown]
  - Lethargy [Unknown]
  - Pharyngeal disorder [Unknown]
  - Unevaluable event [Unknown]
  - Fatigue [Not Recovered/Not Resolved]
  - Blood pressure decreased [Unknown]
  - Cardiac disorder [Unknown]
  - Feeling abnormal [Unknown]
  - Systemic lupus erythematosus [Unknown]
  - Asthenia [Not Recovered/Not Resolved]
  - Blood sodium decreased [Unknown]
  - Dyspnoea [Unknown]
  - Malaise [Unknown]
  - Sinus disorder [Unknown]

NARRATIVE: CASE EVENT DATE: 201704
